FAERS Safety Report 19441589 (Version 1)
Quarter: 2021Q2

REPORT INFORMATION
  Report Type: Spontaneous
  Country: TH (occurrence: TH)
  Receive Date: 20210621
  Receipt Date: 20210621
  Transmission Date: 20210717
  Serious: Yes (Death, Hospitalization)
  Sender: FDA-Public Use
  Company Number: TH-BAXTER-2021BAX016779

PATIENT
  Age: 58 Year
  Sex: Male

DRUGS (1)
  1. DIANEAL [Suspect]
     Active Substance: CALCIUM CHLORIDE\DEXTROSE\MAGNESIUM CHLORIDE\SODIUM CHLORIDE\SODIUM LACTATE
     Indication: PERITONEAL DIALYSIS
     Route: 033
     Dates: start: 202011, end: 20210521

REACTIONS (4)
  - Pneumonia [Unknown]
  - Tuberculosis [Unknown]
  - Diarrhoea [Unknown]
  - Sepsis [Fatal]

NARRATIVE: CASE EVENT DATE: 20210521
